FAERS Safety Report 24935873 (Version 2)
Quarter: 2025Q3

REPORT INFORMATION
  Report Type: Spontaneous
  Country: EU (occurrence: EU)
  Receive Date: 20250206
  Receipt Date: 20250809
  Transmission Date: 20251021
  Serious: Yes (Hospitalization, Other)
  Sender: ALEXION PHARMACEUTICALS
  Company Number: None

PATIENT
  Age: 70 Year
  Sex: Male

DRUGS (1)
  1. DAPAGLIFLOZIN [Suspect]
     Active Substance: DAPAGLIFLOZIN
     Indication: Type 2 diabetes mellitus
     Dosage: 10 MG 1-0-0
     Dates: end: 20250124

REACTIONS (6)
  - Sepsis [Not Recovered/Not Resolved]
  - Fournier^s gangrene [Not Recovered/Not Resolved]
  - Scrotal swelling [Not Recovered/Not Resolved]
  - Testis discomfort [Not Recovered/Not Resolved]
  - Skin discolouration [Not Recovered/Not Resolved]
  - Skin odour abnormal [Not Recovered/Not Resolved]

NARRATIVE: CASE EVENT DATE: 20241201
